FAERS Safety Report 13467353 (Version 1)
Quarter: 2017Q2

REPORT INFORMATION
  Report Type: Spontaneous
  Country: US (occurrence: US)
  Receive Date: 20170421
  Receipt Date: 20170421
  Transmission Date: 20170830
  Serious: No
  Sender: FDA-Public Use
  Company Number: None

PATIENT
  Age: 68 Year
  Sex: Female
  Weight: 58.5 kg

DRUGS (1)
  1. PROLIA [Suspect]
     Active Substance: DENOSUMAB
     Indication: OSTEOPOROSIS

REACTIONS (6)
  - Pyrexia [None]
  - Myalgia [None]
  - Pain in extremity [None]
  - Groin pain [None]
  - Quality of life decreased [None]
  - Gait disturbance [None]

NARRATIVE: CASE EVENT DATE: 20170330
